FAERS Safety Report 7966532-4 (Version None)
Quarter: 2011Q4

REPORT INFORMATION
  Report Type: 
  Country: None (occurrence: None)
  Receive Date: 20111208
  Receipt Date: 20111129
  Transmission Date: 20120403
  Serious: Yes (Hospitalization)
  Sender: FDA-Public Use
  Company Number: US-ASTRAZENECA-2011SE72130

PATIENT
  Sex: Female
  Weight: 65.9 kg

DRUGS (2)
  1. LEXAPRO [Suspect]
     Indication: DEPRESSION
     Route: 048
     Dates: start: 20071219
  2. SEROQUEL [Suspect]
     Dosage: 100 MG EVERY MORNING, 300 MG EVERY NIGHT
     Route: 048

REACTIONS (3)
  - AGGRESSION [None]
  - BIPOLAR I DISORDER [None]
  - LIVER DISORDER [None]
